FAERS Safety Report 26200200 (Version 1)
Quarter: 2025Q4

REPORT INFORMATION
  Report Type: Spontaneous
  Country: US (occurrence: US)
  Receive Date: 20251225
  Receipt Date: 20251225
  Transmission Date: 20260118
  Serious: No
  Sender: AMGEN
  Company Number: US-AMGEN-USASP2025250440

PATIENT
  Sex: Male

DRUGS (22)
  1. REPATHA [Suspect]
     Active Substance: EVOLOCUMAB
     Indication: Product used for unknown indication
     Dosage: UNK
     Route: 065
  2. ASPIRIN [Concomitant]
     Active Substance: ASPIRIN
     Dosage: 81 MILLIGRAM, QD
     Route: 048
  3. TRELEGY ELLIPTA [Concomitant]
     Active Substance: FLUTICASONE FUROATE\UMECLIDINIUM BROMIDE\VILANTEROL TRIFENATATE
     Indication: Asthma
     Dosage: 200-62.5-25 MCG , QD
  4. TRELEGY ELLIPTA [Concomitant]
     Active Substance: FLUTICASONE FUROATE\UMECLIDINIUM BROMIDE\VILANTEROL TRIFENATATE
     Dosage: 200-62.5-25 MCG , QD (DISPENSE 60 EACH REFILL 11)
  5. ALBUTEROL [Concomitant]
     Active Substance: ALBUTEROL
     Indication: Asthma
     Dosage: 90 MICROGRAM, Q4H (INHALE 2 PUFFS EVERY 4 (FOUR) HOURS AS NEEDED)
  6. ALBUTEROL [Concomitant]
     Active Substance: ALBUTEROL
     Dosage: 108 (90 BASE) MCG, USE 2 PUFF EVERY 6 HOURS AS NEEDED
  7. BUDESONIDE [Concomitant]
     Active Substance: BUDESONIDE
     Indication: Asthma
     Dosage: 80 MICROGRAM, Q4H (INHALE 2 PUFFS EVERY 4 (FOUR) HOURS AS NEEDED)
  8. SINEMET CR [Concomitant]
     Active Substance: CARBIDOPA\LEVODOPA
     Indication: Restless legs syndrome
     Dosage: UNK UNK, QD (25 - 100 MG)
     Route: 048
  9. METHOCARBAMOL [Concomitant]
     Active Substance: METHOCARBAMOL
     Indication: Musculoskeletal stiffness
     Dosage: 500 MILLIGRAM, BID (TWICE DAILY AND MAY TAKE ONE AS NEEDED )
     Route: 048
  10. Desyrel xl [Concomitant]
     Dosage: 50 MILLIGRAM, QD AT BEDTIME
     Route: 048
  11. Desyrel xl [Concomitant]
     Dosage: 100 MILLIGRAM, QD AT BEDTIME
     Route: 048
  12. ZOFRAN [Concomitant]
     Active Substance: ONDANSETRON HYDROCHLORIDE
     Dosage: 4 MILLIGRAM, Q8H, EVERY 8 HOURS AS NEEDED
     Route: 048
  13. PHENERGAN [Concomitant]
     Active Substance: PROMETHAZINE HYDROCHLORIDE
     Dosage: 25 MILLIGRAM, Q8H, PHENERGAN
     Route: 048
  14. INSULIN HUMAN [Concomitant]
     Active Substance: INSULIN HUMAN
     Dosage: UNK, 500 UNIT/ML, INJECT IN PUMP AND AVERAGE OF 40 PUMP UNITS (EQUIVALENT TO 200 TOTAL UNITS AS DIRE
     Route: 065
  15. GVOKE [Concomitant]
     Active Substance: GLUCAGON
     Indication: Blood glucose decreased
     Dosage: UNK, 2-PACK 1 MG /0.2 ML
  16. SILDENAFIL [Concomitant]
     Active Substance: SILDENAFIL
     Dosage: 100 MILLIGRAM, AS NECESSARY
     Route: 048
  17. CLEOCIN T [Concomitant]
     Active Substance: CLINDAMYCIN PHOSPHATE
     Dosage: 1 PERCENT, BID
     Route: 061
  18. LYRICA [Concomitant]
     Active Substance: PREGABALIN
     Dosage: 50 MILLIGRAM, QD DAILY AS NEEDED
     Route: 048
  19. FLONASE [Concomitant]
     Active Substance: FLUTICASONE PROPIONATE
     Dosage: 50 MICROGRAM, QD USE ONE SPRAY IN EACH NOSTRIL DAILY AS NEEDED
  20. LASIX [Concomitant]
     Active Substance: FUROSEMIDE
     Dosage: 40 MILLIGRAM, BID, TWO TIMES DAILY; TAKE 1/2 OF 40 MG TABLET BID (PATIENT TAKING DIFFERENTLY; TAKE 8
     Route: 048
  21. FIORICET [Concomitant]
     Active Substance: ACETAMINOPHEN\BUTALBITAL\CAFFEINE
     Dosage: 50-325-40 MG TABLET; TAKE 1 TO 2 TABLET BY MOUTH EVERY 6 HOURS AS NEEDED
     Route: 048
  22. TEZSPIRE [Concomitant]
     Active Substance: TEZEPELUMAB-EKKO
     Dosage: UNK
     Route: 065

REACTIONS (5)
  - Dyspnoea [Unknown]
  - Cough [Unknown]
  - Chest discomfort [Unknown]
  - Peripheral swelling [Unknown]
  - Wheezing [Unknown]
